FAERS Safety Report 7280634-X (Version None)
Quarter: 2011Q1

REPORT INFORMATION
  Report Type: 
  Country: None (occurrence: None)
  Receive Date: 20110208
  Receipt Date: 20110204
  Transmission Date: 20110831
  Serious: Yes (Death, Hospitalization)
  Sender: FDA-Public Use
  Company Number: A0776007A

PATIENT
  Age: 58 Year
  Sex: Male
  Weight: 136.4 kg

DRUGS (5)
  1. AVANDIA [Suspect]
     Dosage: 4MG PER DAY
     Route: 048
     Dates: start: 20010910, end: 20070101
  2. COUMADIN [Concomitant]
  3. ASPIRIN [Concomitant]
     Dosage: 81MG UNKNOWN
  4. POTASSIUM CHLORIDE [Concomitant]
  5. DIGOXIN [Concomitant]
     Dosage: .25U UNKNOWN

REACTIONS (3)
  - HEART INJURY [None]
  - ATELECTASIS [None]
  - SUDDEN CARDIAC DEATH [None]
